FAERS Safety Report 19958820 (Version 2)
Quarter: 2021Q4

REPORT INFORMATION
  Report Type: Spontaneous
  Country: JP (occurrence: JP)
  Receive Date: 20211015
  Receipt Date: 20211117
  Transmission Date: 20220304
  Serious: Yes (Hospitalization)
  Sender: FDA-Public Use
  Company Number: JP-PFIZER INC-202101334036

PATIENT
  Age: 73 Year
  Sex: Male
  Weight: 64.4 kg

DRUGS (11)
  1. CELECOXIB [Suspect]
     Active Substance: CELECOXIB
     Indication: Pain
     Dosage: 100 MG, (1 TABLET) , 2X/DAY
     Route: 048
     Dates: start: 20210621, end: 20210714
  2. METHOTREXATE SODIUM [Suspect]
     Active Substance: METHOTREXATE SODIUM
     Indication: Rheumatoid arthritis
     Dosage: 4 MG X2 ON TUESDAY, 4 MG X1 ON WEDNESDAY
     Route: 048
     Dates: start: 202102, end: 20210714
  3. BUCILLAMINE [Suspect]
     Active Substance: BUCILLAMINE
     Indication: Rheumatoid arthritis
     Dosage: 100 MG (1 TABLET), 2X/DAY
     Route: 048
     Dates: start: 202102, end: 20210714
  4. REBAMIPIDE [Concomitant]
     Active Substance: REBAMIPIDE
  5. FOLIC ACID [Concomitant]
     Active Substance: FOLIC ACID
  6. SITAGLIPTIN [Concomitant]
     Active Substance: SITAGLIPTIN
  7. EDOXABAN TOSYLATE [Concomitant]
     Active Substance: EDOXABAN TOSYLATE
  8. AMARYL [Concomitant]
     Active Substance: GLIMEPIRIDE
  9. VONOPRAZAN FUMARATE [Concomitant]
     Active Substance: VONOPRAZAN FUMARATE
  10. LIPITOR [Concomitant]
     Active Substance: ATORVASTATIN CALCIUM
  11. METGLUCO [Concomitant]
     Active Substance: METFORMIN HYDROCHLORIDE

REACTIONS (1)
  - Interstitial lung disease [Recovering/Resolving]

NARRATIVE: CASE EVENT DATE: 20210706
